FAERS Safety Report 9851713 (Version 5)
Quarter: 2015Q1

REPORT INFORMATION
  Report Type: Report from Study
  Country: FR (occurrence: FR)
  Receive Date: 20140129
  Receipt Date: 20150224
  Transmission Date: 20150721
  Serious: Yes (Hospitalization)
  Sender: FDA-Public Use
  Company Number: FR-ROCHE-615001

PATIENT
  Age: 58 Year
  Sex: Male
  Weight: 124 kg

DRUGS (36)
  1. RITUXIMAB [Interacting]
     Active Substance: RITUXIMAB
     Dosage: THE DRUG WAS REINTRODUCED.
     Route: 042
  2. RITUXIMAB [Interacting]
     Active Substance: RITUXIMAB
     Route: 042
  3. RITUXIMAB [Interacting]
     Active Substance: RITUXIMAB
     Route: 042
  4. RITUXIMAB [Interacting]
     Active Substance: RITUXIMAB
     Route: 042
  5. AMAREL [Concomitant]
     Active Substance: GLIMEPIRIDE
     Indication: TYPE 2 DIABETES MELLITUS
     Route: 048
  6. METHOTREXATE [Concomitant]
     Active Substance: METHOTREXATE
     Route: 065
     Dates: start: 20090416
  7. METHOTREXATE [Concomitant]
     Active Substance: METHOTREXATE
     Route: 065
     Dates: start: 20110526
  8. CORTANCYL [Concomitant]
     Active Substance: PREDNISONE
     Route: 065
     Dates: start: 20100927
  9. OMEPRAZOLE. [Concomitant]
     Active Substance: OMEPRAZOLE
  10. SPECIAFOLDINE [Concomitant]
     Active Substance: FOLIC ACID
  11. FLUINDIONE [Concomitant]
     Active Substance: FLUINDIONE
     Indication: ANTIPHOSPHOLIPID SYNDROME
     Dosage: FREQUENCY: PER DAY.
     Route: 048
  12. METHOTREXATE [Concomitant]
     Active Substance: METHOTREXATE
     Route: 065
     Dates: start: 20100111
  13. GLIMEPIRIDE. [Concomitant]
     Active Substance: GLIMEPIRIDE
  14. RITUXIMAB [Interacting]
     Active Substance: RITUXIMAB
     Route: 042
  15. METHOTREXATE [Concomitant]
     Active Substance: METHOTREXATE
     Route: 065
     Dates: start: 20100927
  16. CORTANCYL [Concomitant]
     Active Substance: PREDNISONE
     Route: 065
     Dates: start: 20100111
  17. RITUXIMAB [Suspect]
     Active Substance: RITUXIMAB
     Indication: RHEUMATOID ARTHRITIS
     Dosage: DRUG REPORTED AS: MABTHERA POLYARTHRITIS
     Route: 042
  18. RITUXIMAB [Interacting]
     Active Substance: RITUXIMAB
     Route: 042
  19. NISIS [Concomitant]
     Active Substance: VALSARTAN
     Route: 048
  20. FOSAMAX [Concomitant]
     Active Substance: ALENDRONATE SODIUM
  21. METHOTREXATE [Concomitant]
     Active Substance: METHOTREXATE
     Route: 065
     Dates: start: 20120130
  22. CORTANCYL [Concomitant]
     Active Substance: PREDNISONE
     Route: 065
     Dates: start: 20080827
  23. CORTANCYL [Concomitant]
     Active Substance: PREDNISONE
     Route: 065
     Dates: start: 20090416
  24. RITUXIMAB [Interacting]
     Active Substance: RITUXIMAB
     Route: 042
  25. TAHOR [Concomitant]
     Active Substance: ATORVASTATIN CALCIUM
     Route: 048
  26. SPECIAFOLDINE [Concomitant]
     Active Substance: FOLIC ACID
  27. RITUXIMAB [Interacting]
     Active Substance: RITUXIMAB
     Route: 042
  28. RITUXIMAB [Interacting]
     Active Substance: RITUXIMAB
     Route: 042
  29. NOVATREX (METHOTREXATE) [Interacting]
     Active Substance: METHOTREXATE SODIUM
     Indication: RHEUMATOID ARTHRITIS
     Route: 048
  30. METHOTREXATE [Concomitant]
     Active Substance: METHOTREXATE
     Route: 065
     Dates: start: 20080827
  31. PREVISCAN (FRANCE) [Concomitant]
     Active Substance: FLUINDIONE
  32. RITUXIMAB [Interacting]
     Active Substance: RITUXIMAB
     Route: 042
  33. RITUXIMAB [Interacting]
     Active Substance: RITUXIMAB
     Route: 042
  34. RITUXIMAB [Interacting]
     Active Substance: RITUXIMAB
     Route: 042
  35. RITUXIMAB [Interacting]
     Active Substance: RITUXIMAB
     Route: 042
  36. METHOTREXATE [Concomitant]
     Active Substance: METHOTREXATE
     Route: 065
     Dates: start: 20120814

REACTIONS (13)
  - Viral infection [Recovered/Resolved]
  - Diabetes mellitus inadequate control [Unknown]
  - Tonsillitis [Recovered/Resolved]
  - Skin ulcer [Not Recovered/Not Resolved]
  - Bursitis [Recovered/Resolved]
  - Hepatocellular injury [Not Recovered/Not Resolved]
  - Ear infection [Recovered/Resolved]
  - Drug interaction [Unknown]
  - Nasopharyngitis [Recovered/Resolved]
  - Erysipelas [Not Recovered/Not Resolved]
  - Nasopharyngitis [Recovered/Resolved with Sequelae]
  - Pseudomonas infection [Recovered/Resolved]
  - Complex regional pain syndrome [Not Recovered/Not Resolved]

NARRATIVE: CASE EVENT DATE: 20090105
